FAERS Safety Report 9901978 (Version 2)
Quarter: 2015Q3

REPORT INFORMATION
  Report Type: Spontaneous
  Country: US (occurrence: US)
  Receive Date: 20140217
  Receipt Date: 20150810
  Transmission Date: 20151125
  Serious: No
  Sender: FDA-Public Use
  Company Number: US-GILEAD-2011-0046385

PATIENT
  Age: 74 Year
  Sex: Female
  Weight: 53.3 kg

DRUGS (4)
  1. COUMADIN [Concomitant]
     Active Substance: WARFARIN SODIUM
  2. REVATIO [Suspect]
     Active Substance: SILDENAFIL CITRATE
  3. LETAIRIS [Suspect]
     Active Substance: AMBRISENTAN
     Indication: PULMONARY ARTERIAL HYPERTENSION
     Dosage: UNK
     Route: 048
  4. TYVASO [Suspect]
     Active Substance: TREPROSTINIL
     Indication: PULMONARY ARTERIAL HYPERTENSION

REACTIONS (6)
  - Hypertension [Unknown]
  - Oedema peripheral [Unknown]
  - Nausea [Unknown]
  - Dyspnoea [Unknown]
  - Diarrhoea [Unknown]
  - Localised oedema [Unknown]

NARRATIVE: CASE EVENT DATE: 201109
